FAERS Safety Report 10302000 (Version 1)
Quarter: 2014Q3

REPORT INFORMATION
  Report Type: Spontaneous
  Country: US (occurrence: None)
  Receive Date: 20140709
  Receipt Date: 20140709
  Transmission Date: 20150326
  Serious: Yes (Hospitalization)
  Sender: FDA-Public Use
  Company Number: None

PATIENT
  Age: 29 Year
  Sex: Female
  Weight: 85.1 kg

DRUGS (2)
  1. JUNEL 1.5/30 [Suspect]
     Active Substance: ETHINYL ESTRADIOL\NORETHINDRONE ACETATE
     Indication: MENORRHAGIA
     Dosage: 1 PILL
     Route: 048
  2. SPIRONOLACTONE. [Concomitant]
     Active Substance: SPIRONOLACTONE
     Indication: MENORRHAGIA
     Dosage: 1 PILL QD ORAL
     Route: 048

REACTIONS (6)
  - Hyperhidrosis [None]
  - Palpitations [None]
  - Pulmonary embolism [None]
  - Dyspnoea [None]
  - Dizziness [None]
  - Local swelling [None]

NARRATIVE: CASE EVENT DATE: 20140630
